FAERS Safety Report 25102645 (Version 1)
Quarter: 2025Q1

REPORT INFORMATION
  Report Type: Report from Study
  Country: US (occurrence: US)
  Receive Date: 20250321
  Receipt Date: 20250321
  Transmission Date: 20250408
  Serious: Yes (Other)
  Sender: RANBAXY
  Company Number: US-SUN PHARMACEUTICAL INDUSTRIES LTD-2025R1-499435

PATIENT
  Age: 34 Year
  Sex: Male

DRUGS (2)
  1. BUPRENORPHINE [Suspect]
     Active Substance: BUPRENORPHINE
     Indication: Drug use disorder
     Route: 060
  2. FENTANYL [Suspect]
     Active Substance: FENTANYL
     Indication: Drug use disorder
     Route: 065

REACTIONS (1)
  - Disease recurrence [Unknown]
